FAERS Safety Report 8957063 (Version 1)
Quarter: 2012Q4

REPORT INFORMATION
  Report Type: Report from Study
  Country: BR (occurrence: BR)
  Receive Date: 20121211
  Receipt Date: 20121211
  Transmission Date: 20130627
  Serious: Yes (Death)
  Sender: FDA-Public Use
  Company Number: BR-ROCHE-1165976

PATIENT
  Sex: Male

DRUGS (2)
  1. BEVACIZUMAB [Suspect]
     Indication: RENAL CANCER METASTATIC
     Route: 065
  2. INTERFERON ALFA [Concomitant]
     Indication: RENAL CANCER METASTATIC

REACTIONS (1)
  - Pneumonitis [Fatal]
